FAERS Safety Report 19203347 (Version 2)
Quarter: 2021Q2

REPORT INFORMATION
  Report Type: Spontaneous
  Country: FR (occurrence: FR)
  Receive Date: 20210430
  Receipt Date: 20210512
  Transmission Date: 20210717
  Serious: Yes (Hospitalization, Other)
  Sender: FDA-Public Use
  Company Number: FR-JNJFOC-20210451107

PATIENT
  Age: 16 Year
  Sex: Male
  Weight: 40 kg

DRUGS (3)
  1. DEPAKINE [VALPROIC ACID] [Suspect]
     Active Substance: VALPROIC ACID
     Indication: EPILEPSY
     Route: 048
     Dates: start: 2009, end: 20210417
  2. EPITOMAX [Suspect]
     Active Substance: TOPIRAMATE
     Indication: EPILEPSY
     Route: 048
     Dates: start: 2009, end: 20210413
  3. MICROPAKINE LP [Suspect]
     Active Substance: VALPROATE SODIUM
     Indication: EPILEPSY
     Route: 065

REACTIONS (6)
  - Renal tubular disorder [Recovering/Resolving]
  - Respiratory tract infection [Unknown]
  - Decubitus ulcer [Unknown]
  - Vomiting [Unknown]
  - Gastrostomy [Unknown]
  - Stoma site extravasation [Unknown]

NARRATIVE: CASE EVENT DATE: 2011
